FAERS Safety Report 9574362 (Version 3)
Quarter: 2013Q4

REPORT INFORMATION
  Report Type: Spontaneous
  Country: JP (occurrence: JP)
  Receive Date: 20131001
  Receipt Date: 20131223
  Transmission Date: 20140711
  Serious: Yes (Life-Threatening, Other)
  Sender: FDA-Public Use
  Company Number: JP-TAKEDA-TCI2012A00630

PATIENT
  Age: 77 Year
  Sex: Female
  Weight: 32 kg

DRUGS (4)
  1. TAKEPRON OD TABLETS 15 [Suspect]
     Indication: GASTROOESOPHAGEAL REFLUX DISEASE
     Dosage: 15 MG, QD
     Route: 048
     Dates: start: 201107, end: 20120203
  2. NORVASC [Concomitant]
     Indication: HYPERTENSION
     Dosage: 5 MG, 1 DAYS
     Route: 048
  3. RISEDRONATE SODIUM [Concomitant]
     Dosage: UNK
     Route: 048
  4. MAGNESIUM OXIDE [Concomitant]
     Dosage: UNK
     Route: 048

REACTIONS (3)
  - Large intestine perforation [Recovered/Resolved]
  - Colitis microscopic [Recovered/Resolved]
  - Peritonitis [Recovered/Resolved]
